FAERS Safety Report 7749774-2 (Version None)
Quarter: 2011Q3

REPORT INFORMATION
  Report Type: 
  Country: None (occurrence: None)
  Receive Date: 20110914
  Receipt Date: 20110902
  Transmission Date: 20111222
  Serious: Yes (Other)
  Sender: FDA-Public Use
  Company Number: NO-SANOFI-AVENTIS-2011SA056546

PATIENT
  Age: 70 Year
  Sex: Male

DRUGS (1)
  1. DRONEDARONE HCL [Suspect]
     Route: 065

REACTIONS (1)
  - CREATININE RENAL CLEARANCE INCREASED [None]
